FAERS Safety Report 25707378 (Version 1)
Quarter: 2025Q3

REPORT INFORMATION
  Report Type: Spontaneous
  Country: US (occurrence: US)
  Receive Date: 20250820
  Receipt Date: 20250820
  Transmission Date: 20251021
  Serious: Yes (Other)
  Sender: SANDOZ
  Company Number: US-002147023-NVSC2023US184587

PATIENT
  Sex: Male

DRUGS (8)
  1. ALLOPURINOL [Suspect]
     Active Substance: ALLOPURINOL
     Indication: Psoriatic arthropathy
     Route: 065
  2. COSENTYX [Suspect]
     Active Substance: SECUKINUMAB
     Indication: Psoriatic arthropathy
     Route: 058
  3. IBUPROFEN [Suspect]
     Active Substance: IBUPROFEN
     Indication: Psoriatic arthropathy
     Route: 058
  4. METHOTREXATE [Suspect]
     Active Substance: METHOTREXATE
     Indication: Psoriatic arthropathy
     Route: 065
  5. OXAPROZIN [Suspect]
     Active Substance: OXAPROZIN
     Indication: Product used for unknown indication
     Route: 065
  6. PREDNISONE [Suspect]
     Active Substance: PREDNISONE
     Indication: Psoriatic arthropathy
     Route: 065
  7. SULFASALAZINE [Suspect]
     Active Substance: SULFASALAZINE
     Indication: Psoriatic arthropathy
     Route: 065
  8. VITAMIN D NOS [Suspect]
     Active Substance: CHOLECALCIFEROL\ERGOCALCIFEROL
     Indication: Vitamin D deficiency
     Route: 065

REACTIONS (10)
  - Joint range of motion decreased [Unknown]
  - Joint swelling [Unknown]
  - Musculoskeletal stiffness [Unknown]
  - Peripheral swelling [Unknown]
  - Arthralgia [Unknown]
  - Psoriatic arthropathy [Unknown]
  - Rash [Unknown]
  - Nausea [Unknown]
  - Therapeutic product effect incomplete [Unknown]
  - Off label use [Unknown]
